FAERS Safety Report 5005306-3 (Version None)
Quarter: 2006Q2

REPORT INFORMATION
  Report Type: 
  Country: None (occurrence: None)
  Receive Date: 20060518
  Receipt Date: 20060510
  Transmission Date: 20061013
  Serious: Yes (Death)
  Sender: FDA-Public Use
  Company Number: 2005JP002161

PATIENT
  Age: 68 Year
  Sex: Female

DRUGS (1)
  1. CEFAZOLIN [Suspect]
     Indication: DRUG USE FOR UNKNOWN INDICATION
     Dosage: 1G TWICE PER DAY
     Route: 042
     Dates: start: 20050831

REACTIONS (2)
  - DEATH [None]
  - HEPATIC FUNCTION ABNORMAL [None]
